FAERS Safety Report 24451016 (Version 2)
Quarter: 2024Q4

REPORT INFORMATION
  Report Type: Spontaneous
  Country: FR (occurrence: FR)
  Receive Date: 20241017
  Receipt Date: 20241122
  Transmission Date: 20250115
  Serious: Yes (Death, Other)
  Sender: MERCK
  Company Number: None

PATIENT
  Age: 66 Year
  Sex: Male
  Weight: 82 kg

DRUGS (6)
  1. KEYTRUDA [Suspect]
     Active Substance: PEMBROLIZUMAB
     Indication: Renal cancer
     Route: 042
     Dates: start: 20240620, end: 20240822
  2. LENVATINIB MESYLATE [Suspect]
     Active Substance: LENVATINIB MESYLATE
     Indication: Renal cancer
     Route: 048
     Dates: start: 20240620, end: 20240828
  3. LOVENOX [Suspect]
     Active Substance: ENOXAPARIN SODIUM
     Indication: Thrombosis prophylaxis
     Route: 058
     Dates: start: 20240826, end: 20240828
  4. KARDEGIC [Suspect]
     Active Substance: ASPIRIN DL-LYSINE
     Indication: Essential thrombocythaemia
     Route: 048
     Dates: start: 20240827, end: 20240828
  5. ASPIRIN [Suspect]
     Active Substance: ASPIRIN
     Indication: Essential thrombocythaemia
     Route: 048
     Dates: end: 20240826
  6. ESCITALOPRAM [Suspect]
     Active Substance: ESCITALOPRAM OXALATE
     Indication: Depression
     Route: 048
     Dates: end: 20240826

REACTIONS (1)
  - Subdural haematoma [Fatal]

NARRATIVE: CASE EVENT DATE: 20240828
